FAERS Safety Report 7985862-3 (Version None)
Quarter: 2011Q4

REPORT INFORMATION
  Report Type: 
  Country: None (occurrence: None)
  Receive Date: 20111214
  Receipt Date: 20111130
  Transmission Date: 20120403
  Serious: Yes (Death, Life-Threatening, Hospitalization)
  Sender: FDA-Public Use
  Company Number: 2009AL000985

PATIENT
  Age: 65 Year
  Sex: Male
  Weight: 94.3482 kg

DRUGS (55)
  1. MECLIZINE [Concomitant]
  2. METOLAZONE [Concomitant]
  3. ATIVAN [Concomitant]
  4. ROCEPHIN [Concomitant]
  5. FUROSEMIDE [Concomitant]
  6. GENTAMICIN [Concomitant]
  7. HYDROCODONE [Concomitant]
  8. APAP TAB [Concomitant]
  9. NEURONTIN [Concomitant]
  10. TORSEMIDE [Concomitant]
  11. SINGULAIR [Concomitant]
  12. NITROGLYCERIN [Concomitant]
  13. PROVENTIL [Concomitant]
  14. ZAROXOLYN [Concomitant]
  15. CEFUOXINE [Concomitant]
  16. CIMETIDINE [Concomitant]
  17. POTASSIUM CHLORIDE [Concomitant]
  18. METHYLPREDNISOLONE [Concomitant]
  19. NORVASC [Concomitant]
  20. SPIRIVA [Concomitant]
  21. WARFARIN [Concomitant]
  22. CEFTRIXONE [Concomitant]
  23. DIGOXIN [Suspect]
     Indication: CARDIAC FAILURE CONGESTIVE
     Dosage: 0.25 MG;QD;PO
     Route: 048
     Dates: start: 20010312, end: 20080209
  24. BACTRIM DS [Concomitant]
  25. COMBIVENT [Concomitant]
  26. LANTUS [Concomitant]
  27. NOVOLOG [Concomitant]
  28. PREDNISONE [Concomitant]
  29. CEPHALEXIN [Concomitant]
  30. COREG [Concomitant]
  31. HUMALOG [Concomitant]
  32. ISOSORBIDE DINITRATE [Concomitant]
  33. LOVASTATIN [Concomitant]
  34. APRIDA [Concomitant]
  35. OMEPRAZOLE [Concomitant]
  36. OMNICEF [Concomitant]
  37. THEOPHYLLINE [Concomitant]
  38. DECADRON [Concomitant]
  39. MAGNESIUM SULFATE [Concomitant]
  40. XOPENEX [Concomitant]
  41. ALBUTEROL [Concomitant]
  42. LEVAQUIN [Concomitant]
  43. VISTARIL [Concomitant]
  44. LISINOPRIL [Concomitant]
  45. SOLU-MEDROL [Concomitant]
  46. ADVAIR DISKUS 100/50 [Concomitant]
  47. MUCINEX [Concomitant]
  48. NYSTATIN [Concomitant]
  49. AMINOPHYLLINE [Concomitant]
  50. ASPIRIN [Concomitant]
  51. ATROVENT [Concomitant]
  52. DYPHYLLIN-GG [Concomitant]
  53. LYRICA [Concomitant]
  54. TRAZODONE HCL [Concomitant]
  55. ZOCOR [Concomitant]

REACTIONS (27)
  - PULSE ABSENT [None]
  - ATRIAL FIBRILLATION [None]
  - MULTIPLE INJURIES [None]
  - PAIN [None]
  - ANHEDONIA [None]
  - PERICARDIAL EFFUSION [None]
  - BRONCHITIS [None]
  - TREATMENT NONCOMPLIANCE [None]
  - URTICARIA [None]
  - FALL [None]
  - UNRESPONSIVE TO STIMULI [None]
  - HAEMOPTYSIS [None]
  - ECONOMIC PROBLEM [None]
  - ARTERIOSCLEROSIS [None]
  - HYPERGLYCAEMIA [None]
  - ABDOMINAL PAIN [None]
  - CARDIAC FAILURE CONGESTIVE [None]
  - CONTUSION [None]
  - NAUSEA [None]
  - ANXIETY [None]
  - VOMITING [None]
  - LIVEDO RETICULARIS [None]
  - VENTRICULAR EXTRASYSTOLES [None]
  - CHRONIC OBSTRUCTIVE PULMONARY DISEASE [None]
  - INSOMNIA [None]
  - RASH [None]
  - BUNDLE BRANCH BLOCK LEFT [None]
